FAERS Safety Report 4815569-2 (Version None)
Quarter: 2005Q4

REPORT INFORMATION
  Report Type: 
  Country: None (occurrence: None)
  Receive Date: 20051031
  Receipt Date: 20050705
  Transmission Date: 20060501
  Serious: Yes (Death, Life-Threatening)
  Sender: FDA-Public Use
  Company Number: 200511403DE

PATIENT
  Age: 75 Year
  Sex: Female

DRUGS (9)
  1. ENOXAPARIN SODIUM [Suspect]
     Indication: MESENTERIC OCCLUSION
     Route: 058
     Dates: start: 20050616, end: 20050618
  2. ENOXAPARIN SODIUM [Suspect]
     Indication: ATRIAL FIBRILLATION
     Route: 058
     Dates: start: 20050616, end: 20050618
  3. MARCUMAR [Suspect]
     Indication: MESENTERIC OCCLUSION
     Dosage: DOSE: 1/2; DOSE UNIT: UNITS
     Route: 048
     Dates: start: 20050617, end: 20050618
  4. MARCUMAR [Suspect]
     Indication: ATRIAL FIBRILLATION
     Dosage: DOSE: 1/2; DOSE UNIT: UNITS
     Route: 048
     Dates: start: 20050617, end: 20050618
  5. ISOPTIN [Concomitant]
     Indication: ATRIAL FIBRILLATION
     Dosage: DOSE: 1.5-1.5-1.5; DOSE UNIT: UNITS
     Route: 048
  6. CALCIUM GLUCONATE [Concomitant]
     Indication: HYPOCALCAEMIA
     Route: 048
  7. NEXIUM [Concomitant]
     Indication: PROPHYLAXIS AGAINST GASTROINTESTINAL ULCER
     Route: 048
  8. IMODIUM [Concomitant]
     Indication: SHORT-BOWEL SYNDROME
     Route: 048
  9. ROCALTROL [Concomitant]
     Indication: HYPOCALCAEMIA
     Route: 048

REACTIONS (3)
  - MULTI-ORGAN FAILURE [None]
  - RETROPERITONEAL HAEMORRHAGE [None]
  - RHABDOMYOLYSIS [None]
